FAERS Safety Report 21945129 (Version 1)
Quarter: 2023Q1

REPORT INFORMATION
  Report Type: Spontaneous
  Country: KR (occurrence: KR)
  Receive Date: 20230202
  Receipt Date: 20230202
  Transmission Date: 20230418
  Serious: Yes (Hospitalization)
  Sender: FDA-Public Use
  Company Number: KR-002147023-NVSC2023KR023242

PATIENT
  Sex: Male

DRUGS (1)
  1. EXELON [Suspect]
     Active Substance: RIVASTIGMINE TARTRATE
     Indication: Product used for unknown indication
     Dosage: UNK
     Route: 062

REACTIONS (4)
  - Chills [Recovered/Resolved]
  - Dizziness [Recovered/Resolved]
  - Chills [Recovered/Resolved]
  - Dizziness [Recovered/Resolved]
